FAERS Safety Report 14728422 (Version 1)
Quarter: 2018Q2

REPORT INFORMATION
  Report Type: Spontaneous
  Country: US (occurrence: US)
  Receive Date: 20180402
  Receipt Date: 20180402
  Transmission Date: 20180711
  Serious: Yes (Life-Threatening, Hospitalization)
  Sender: FDA-Public Use
  Company Number: None

PATIENT
  Age: 81 Year
  Sex: Male
  Weight: 94.8 kg

DRUGS (2)
  1. SULFAMETHOXAZOLE/TRIMETHOPRIM [Suspect]
     Active Substance: SULFAMETHOXAZOLE\TRIMETHOPRIM
     Indication: PROPHYLAXIS
     Route: 048
     Dates: start: 20180222, end: 20180222
  2. SULFAMETHOXAZOLE/TRIMETHOPRIM [Suspect]
     Active Substance: SULFAMETHOXAZOLE\TRIMETHOPRIM
     Indication: VASCULAR OPERATION
     Route: 048
     Dates: start: 20180222, end: 20180222

REACTIONS (24)
  - Discomfort [None]
  - Postictal state [None]
  - Tachycardia [None]
  - Malaise [None]
  - Hypertension [None]
  - Respiratory arrest [None]
  - Paraesthesia [None]
  - Pulse absent [None]
  - Cardiac arrest [None]
  - Defaecation urgency [None]
  - Vomiting [None]
  - Oxygen saturation decreased [None]
  - Swollen tongue [None]
  - Anaphylactic reaction [None]
  - Angioedema [None]
  - Restlessness [None]
  - Cardio-respiratory arrest [None]
  - Blood glucose increased [None]
  - Hyperhidrosis [None]
  - Disorientation [None]
  - Seizure [None]
  - Respiratory distress [None]
  - Flushing [None]
  - Upper airway obstruction [None]

NARRATIVE: CASE EVENT DATE: 20180222
